FAERS Safety Report 19950190 (Version 1)
Quarter: 2021Q4

REPORT INFORMATION
  Report Type: Spontaneous
  Country: US (occurrence: US)
  Receive Date: 20211011
  Receipt Date: 20211011
  Transmission Date: 20220304
  Serious: Yes (Hospitalization)
  Sender: FDA-Public Use
  Company Number: None

PATIENT
  Age: 79 Year
  Sex: Female

DRUGS (1)
  1. PROLIA [Suspect]
     Active Substance: DENOSUMAB
     Indication: Osteoporosis
     Dosage: ?          OTHER FREQUENCY:EVERY 6 MONTHS ;
     Route: 058
     Dates: start: 202004

REACTIONS (4)
  - Dizziness [None]
  - Fall [None]
  - Facial bones fracture [None]
  - Haemorrhage [None]

NARRATIVE: CASE EVENT DATE: 20210901
